FAERS Safety Report 4865152-8 (Version None)
Quarter: 2005Q4

REPORT INFORMATION
  Report Type: 
  Country: None (occurrence: None)
  Receive Date: 20051223
  Receipt Date: 20051222
  Transmission Date: 20060501
  Serious: Yes (Hospitalization)
  Sender: FDA-Public Use
  Company Number: US-GLAXOSMITHKLINE-A0586796A

PATIENT
  Age: 44 Year
  Sex: Male

DRUGS (2)
  1. NICORETTE (MINT) [Suspect]
     Dosage: 4MG THREE TIMES PER DAY
     Route: 002
     Dates: start: 20051202, end: 20051210
  2. PAXIL [Concomitant]

REACTIONS (1)
  - PALPITATIONS [None]
